FAERS Safety Report 15469443 (Version 4)
Quarter: 2019Q4

REPORT INFORMATION
  Report Type: Report from Study
  Country: US (occurrence: US)
  Receive Date: 20181005
  Receipt Date: 20191213
  Transmission Date: 20200122
  Serious: Yes (Hospitalization)
  Sender: FDA-Public Use
  Company Number: US-PFIZER INC-2018395575

PATIENT
  Age: 64 Year
  Sex: Male
  Weight: 104.4 kg

DRUGS (10)
  1. RITALIN [Concomitant]
     Active Substance: METHYLPHENIDATE HYDROCHLORIDE
     Indication: DEPRESSION
     Dosage: 5 MG, 2X/DAY (BID)
     Route: 048
     Dates: start: 20180716
  2. NORVASC [Concomitant]
     Active Substance: AMLODIPINE BESYLATE
     Indication: HYPERTENSION
     Dosage: 5 MG, 1X/DAY (QD)
     Route: 048
     Dates: start: 20180301
  3. INLYTA [Suspect]
     Active Substance: AXITINIB
     Indication: RENAL CELL CARCINOMA
     Dosage: 2 MG, TWICE DAILY CONTINUOUS
     Route: 048
     Dates: start: 20170411, end: 20180828
  4. AVELUMAB [Suspect]
     Active Substance: AVELUMAB
     Indication: RENAL CELL CARCINOMA
     Dosage: 1040 MG, EVERY 2 WEEKS
     Route: 042
     Dates: start: 20180814, end: 20180814
  5. ZYLOPRIM [Concomitant]
     Active Substance: ALLOPURINOL
     Dosage: UNK
  6. MG PLUS PROTEIN [Concomitant]
     Indication: HYPOMAGNESAEMIA
     Dosage: 133 MG, 3X/DAY (TID)
     Route: 048
     Dates: start: 20171219
  7. TOPROL XL [Concomitant]
     Active Substance: METOPROLOL SUCCINATE
     Indication: HYPERTENSION
     Dosage: 50 MG, 1X/DAY (QD)
     Route: 048
     Dates: start: 20180301
  8. ROXICODONE [Concomitant]
     Active Substance: OXYCODONE HYDROCHLORIDE
     Indication: PAIN
     Dosage: 5 MG, 4X/DAY (QID)
     Route: 048
     Dates: start: 20180813
  9. CYMBALTA [Concomitant]
     Active Substance: DULOXETINE HYDROCHLORIDE
     Indication: DEPRESSION
     Dosage: 60 MG, 2X/DAY (BID)
     Route: 048
     Dates: start: 20170522
  10. ZYPREXA [Concomitant]
     Active Substance: OLANZAPINE
     Indication: ANXIETY
     Dosage: 5 MG, 1X/DAY(QD)
     Route: 048
     Dates: start: 20180716

REACTIONS (1)
  - Diabetes mellitus [Recovered/Resolved with Sequelae]

NARRATIVE: CASE EVENT DATE: 20180828
